FAERS Safety Report 23193748 (Version 1)
Quarter: 2023Q4

REPORT INFORMATION
  Report Type: Spontaneous
  Country: US (occurrence: US)
  Receive Date: 20231116
  Receipt Date: 20231116
  Transmission Date: 20240110
  Serious: Yes (Death, Life-Threatening, Hospitalization, Other)
  Sender: FDA-Public Use
  Company Number: US-JNJFOC-20231119294

PATIENT
  Age: 78 Year
  Sex: Male

DRUGS (1)
  1. IMBRUVICA [Suspect]
     Active Substance: IBRUTINIB
     Indication: Chronic lymphocytic leukaemia
     Route: 048

REACTIONS (8)
  - Multiple organ dysfunction syndrome [Fatal]
  - Thrombocytopenia [Unknown]
  - Acute kidney injury [Unknown]
  - Sepsis [Unknown]
  - Off label use [Unknown]
  - Respiratory failure [Fatal]
  - Pneumonia pseudomonal [Unknown]
  - Off label use [Unknown]
